FAERS Safety Report 16793825 (Version 1)
Quarter: 2019Q3

REPORT INFORMATION
  Report Type: Report from Study
  Country: IT (occurrence: IT)
  Receive Date: 20190911
  Receipt Date: 20190911
  Transmission Date: 20191005
  Serious: Yes (Other)
  Sender: FDA-Public Use
  Company Number: IT-TEVA-2019-IT-1103970

PATIENT
  Age: 9 Year
  Sex: Male
  Weight: 37 kg

DRUGS (19)
  1. BACTRIM [Concomitant]
     Active Substance: SULFAMETHOXAZOLE\TRIMETHOPRIM
     Dosage: 2 DF
     Route: 048
  2. UROMITEXAN [Suspect]
     Active Substance: MESNA
     Indication: ACUTE LYMPHOCYTIC LEUKAEMIA
     Dosage: 2100 MG
     Route: 042
     Dates: start: 20181223, end: 20181224
  3. METHOTREXATE. [Suspect]
     Active Substance: METHOTREXATE
     Indication: ACUTE LYMPHOCYTIC LEUKAEMIA
     Dosage: 12 MG
     Route: 037
     Dates: start: 20181221, end: 20181221
  4. METHOTREXATE. [Suspect]
     Active Substance: METHOTREXATE
     Dosage: 5850 MG
     Route: 042
     Dates: start: 20181115, end: 20181221
  5. DEURSIL [Concomitant]
     Active Substance: URSODIOL
     Dosage: 300 MG
     Route: 048
     Dates: start: 20181228
  6. URBASON [Concomitant]
     Active Substance: METHYLPREDNISOLONE
     Indication: PREMEDICATION
     Dosage: 10 MG
     Route: 037
     Dates: start: 20181221, end: 20181221
  7. UROMITEXAN [Suspect]
     Active Substance: MESNA
     Dosage: 350 MG
     Route: 042
     Dates: start: 20181222, end: 20181222
  8. UROMITEXAN [Suspect]
     Active Substance: MESNA
     Dosage: 700 MG
     Route: 042
     Dates: start: 20181225, end: 20181225
  9. IFOSFAMIDE. [Suspect]
     Active Substance: IFOSFAMIDE
     Indication: ACUTE LYMPHOCYTIC LEUKAEMIA
     Dosage: 1872 MG
     Route: 042
     Dates: start: 20181223, end: 20181224
  10. DAUNOBLASTINA [Suspect]
     Active Substance: DAUNORUBICIN
     Indication: ACUTE LYMPHOCYTIC LEUKAEMIA
     Dosage: 35 MG
     Route: 042
     Dates: start: 20181225, end: 20181225
  11. LASIX [Concomitant]
     Active Substance: FUROSEMIDE
     Dosage: 40 MG
     Route: 042
  12. ANTRA [Concomitant]
     Active Substance: OMEPRAZOLE
     Dosage: 20 MG
  13. DECADRON [Concomitant]
     Active Substance: DEXAMETHASONE
     Dosage: 23.4 MG
     Route: 048
     Dates: start: 20181221, end: 20181226
  14. ONCASPAR [Suspect]
     Active Substance: PEGASPARGASE
     Indication: ACUTE LYMPHOCYTIC LEUKAEMIA
     Dosage: 2925 KU
     Route: 042
     Dates: start: 20181204, end: 20181226
  15. DILATREND [Concomitant]
     Active Substance: CARVEDILOL
     Dosage: 3.12 MG
     Route: 048
  16. LEDERFOLIN [Concomitant]
     Active Substance: LEUCOVORIN CALCIUM
     Dosage: 54 MG
     Route: 042
     Dates: start: 20181223, end: 20181224
  17. IFOSFAMIDE. [Suspect]
     Active Substance: IFOSFAMIDE
     Route: 042
     Dates: start: 20181222, end: 20181222
  18. VINDESINE SULFATE [Suspect]
     Active Substance: VINDESINE SULFATE
     Indication: ACUTE LYMPHOCYTIC LEUKAEMIA
     Dosage: 3.5 MG
     Route: 042
     Dates: start: 20181221, end: 20181226
  19. MYCOSTATIN [Concomitant]
     Active Substance: NYSTATIN
     Dosage: 15 ML
     Route: 048

REACTIONS (2)
  - Aplasia [Unknown]
  - Diarrhoea [Unknown]

NARRATIVE: CASE EVENT DATE: 20181231
